FAERS Safety Report 9288716 (Version 1)
Quarter: 2013Q2

REPORT INFORMATION
  Report Type: Spontaneous
  Country: US (occurrence: US)
  Receive Date: 20130514
  Receipt Date: 20130514
  Transmission Date: 20140414
  Serious: Yes (Other)
  Sender: FDA-Public Use
  Company Number: US-AMGEN-USASP2013033449

PATIENT
  Age: 63 Year
  Sex: Male
  Weight: 95 kg

DRUGS (6)
  1. ENBREL [Suspect]
     Indication: PRODUCT USED FOR UNKNOWN INDICATION
     Dosage: 50 MG, QWK
     Route: 058
  2. METHOTREXATE [Concomitant]
     Dosage: 2.5 MG, UNK
     Route: 048
  3. PRAVASTATIN [Concomitant]
     Dosage: 40 MG, UNK
     Route: 048
  4. AMLODIPINE [Concomitant]
     Dosage: 10 MG, UNK
     Route: 048
  5. LISINOPRIL [Concomitant]
     Dosage: 20 MG, UNK
     Route: 048
  6. FOLIC ACID [Concomitant]
     Dosage: 5 MG, UNK
     Route: 048

REACTIONS (2)
  - Pneumonia [Recovered/Resolved]
  - Rheumatoid arthritis [Unknown]
